FAERS Safety Report 25095410 (Version 1)
Quarter: 2025Q1

REPORT INFORMATION
  Report Type: Spontaneous
  Country: US (occurrence: US)
  Receive Date: 20250319
  Receipt Date: 20250319
  Transmission Date: 20250409
  Serious: Yes (Death)
  Sender: BAYER HEALTHCARE LLC
  Company Number: US-BAYER-2025A037649

PATIENT
  Age: 85 Year
  Sex: Female

DRUGS (4)
  1. TINACTIN [Suspect]
     Active Substance: TOLNAFTATE
     Indication: Personal hygiene
     Dosage: UNK, QD
     Dates: start: 1970, end: 2020
  2. UNSPECIFIED INGREDIENT [Suspect]
     Active Substance: UNSPECIFIED INGREDIENT
  3. ZEASORB [Concomitant]
     Active Substance: MICONAZOLE NITRATE
     Dates: start: 1970, end: 2020
  4. Johnson^s baby powder medicated [Concomitant]
     Dates: start: 1960, end: 2010

REACTIONS (5)
  - Mesothelioma malignant [Fatal]
  - Pain [None]
  - Anxiety [None]
  - Anhedonia [None]
  - Product contamination [None]

NARRATIVE: CASE EVENT DATE: 19700101
